FAERS Safety Report 7975583-5 (Version None)
Quarter: 2011Q4

REPORT INFORMATION
  Report Type: 
  Country: None (occurrence: None)
  Receive Date: 20111213
  Receipt Date: 20111003
  Transmission Date: 20120403
  Serious: Yes (Other)
  Sender: FDA-Public Use
  Company Number: US-AMGEN-USASP2011050948

PATIENT
  Age: 57 Year
  Sex: Female

DRUGS (1)
  1. ENBREL [Suspect]
     Indication: RHEUMATOID ARTHRITIS
     Dosage: 50 MG, QWK
     Dates: start: 20071108, end: 20110901

REACTIONS (5)
  - EAR PAIN [None]
  - RHEUMATOID ARTHRITIS [None]
  - PERITONSILLAR ABSCESS [None]
  - OROPHARYNGEAL PAIN [None]
  - PYREXIA [None]
